FAERS Safety Report 15280702 (Version 1)
Quarter: 2018Q3

REPORT INFORMATION
  Report Type: Report from Study
  Country: PL (occurrence: PL)
  Receive Date: 20180815
  Receipt Date: 20180815
  Transmission Date: 20181010
  Serious: Yes (Other)
  Sender: FDA-Public Use
  Company Number: PL-CHIESI USA INC.-PL-2018CHI000201

PATIENT
  Age: 0 Day
  Sex: Male
  Weight: 1.35 kg

DRUGS (7)
  1. CUROSURF [Suspect]
     Active Substance: PORACTANT ALFA
     Indication: NEONATAL RESPIRATORY DISTRESS SYNDROME
     Dosage: 3 ML, SINGLE
     Route: 039
     Dates: start: 20180624, end: 20180624
  2. PEYONA [Concomitant]
     Indication: INFANTILE APNOEA
     Dosage: 20 MG, UNK
     Route: 042
     Dates: start: 20180624, end: 20180726
  3. PERFALGAN [Concomitant]
     Active Substance: ACETAMINOPHEN
     Indication: PYREXIA
  4. GENTAMYCINUM [Concomitant]
     Indication: ANTIBIOTIC THERAPY
     Dosage: 5 MG, QD
     Route: 042
     Dates: start: 20180624, end: 20180701
  5. PERFALGAN [Concomitant]
     Active Substance: ACETAMINOPHEN
     Indication: ANALGESIC THERAPY
     Dosage: 30 MG, QD
     Route: 042
     Dates: start: 20180624, end: 20180703
  6. PARACETAMOL [Concomitant]
     Active Substance: ACETAMINOPHEN
     Indication: PREMEDICATION
     Dosage: UNK
     Route: 042
     Dates: start: 20180624
  7. AMPICILLINUM ANHYDRICUM [Concomitant]
     Indication: ANTIBIOTIC THERAPY
     Dosage: 140 MG, QD
     Route: 042
     Dates: start: 20180624, end: 20180702

REACTIONS (1)
  - Neonatal hypoxia [Recovered/Resolved]

NARRATIVE: CASE EVENT DATE: 20180624
